FAERS Safety Report 16306085 (Version 1)
Quarter: 2020Q3

REPORT INFORMATION
  Report Type: Report from Study
  Country: FR (occurrence: FR)
  Receive Date: 20190513
  Receipt Date: 20190513
  Transmission Date: 20201104
  Serious: Yes (Hospitalization)
  Sender: FDA-Public Use
  Company Number: FR-JNJFOC-20171122783

PATIENT
  Age: 18 Year
  Sex: Female
  Weight: 52 kg

DRUGS (16)
  1. ESKETAMINE [Suspect]
     Active Substance: ESKETAMINE
     Indication: SUICIDAL IDEATION
     Route: 045
     Dates: start: 20171012, end: 20171106
  2. ZOLOFT [Concomitant]
     Active Substance: SERTRALINE HYDROCHLORIDE
     Indication: SUICIDAL IDEATION
     Dosage: FREQUENCY REPORTED AS ^ONCE^
     Route: 048
     Dates: start: 20170930, end: 20171101
  3. ESKETAMINE [Suspect]
     Active Substance: ESKETAMINE
     Indication: MAJOR DEPRESSION
     Route: 045
     Dates: start: 20171012, end: 20171106
  4. XEROQUEL [Concomitant]
     Active Substance: QUETIAPINE FUMARATE
     Indication: MAJOR DEPRESSION
     Dosage: FREQUENCY REPORTED AS ^ONCE^
     Route: 048
     Dates: start: 20171019
  5. XEROQUEL [Concomitant]
     Active Substance: QUETIAPINE FUMARATE
     Indication: SUICIDAL IDEATION
     Dosage: FREQUENCY REPORTED AS ^ONCE^
     Route: 048
     Dates: start: 20171019
  6. VALIUM [Concomitant]
     Active Substance: DIAZEPAM
     Indication: MAJOR DEPRESSION
     Route: 048
     Dates: start: 20170930
  7. VALIUM [Concomitant]
     Active Substance: DIAZEPAM
     Indication: SUICIDAL IDEATION
     Route: 048
     Dates: start: 20170930
  8. XEROQUEL [Concomitant]
     Active Substance: QUETIAPINE FUMARATE
     Indication: SUICIDAL IDEATION
     Dosage: FREQUENCY REPORTED AS ^ONCE^
     Route: 048
     Dates: start: 20171006, end: 20171010
  9. XEROQUEL [Concomitant]
     Active Substance: QUETIAPINE FUMARATE
     Indication: MAJOR DEPRESSION
     Route: 048
     Dates: start: 20171011, end: 20171018
  10. XEROQUEL [Concomitant]
     Active Substance: QUETIAPINE FUMARATE
     Indication: SUICIDAL IDEATION
     Route: 048
     Dates: start: 20171011, end: 20171018
  11. ZOLOFT [Concomitant]
     Active Substance: SERTRALINE HYDROCHLORIDE
     Indication: MAJOR DEPRESSION
     Route: 048
     Dates: start: 20171002, end: 20171004
  12. ZOLOFT [Concomitant]
     Active Substance: SERTRALINE HYDROCHLORIDE
     Indication: SUICIDAL IDEATION
     Route: 048
     Dates: start: 20171005
  13. XEROQUEL [Concomitant]
     Active Substance: QUETIAPINE FUMARATE
     Indication: MAJOR DEPRESSION
     Dosage: FREQUENCY REPORTED AS ^ONCE^
     Route: 048
     Dates: start: 20171006, end: 20171010
  14. ZOLOFT [Concomitant]
     Active Substance: SERTRALINE HYDROCHLORIDE
     Indication: MAJOR DEPRESSION
     Route: 048
     Dates: start: 20171005
  15. ZOLOFT [Concomitant]
     Active Substance: SERTRALINE HYDROCHLORIDE
     Indication: MAJOR DEPRESSION
     Dosage: FREQUENCY REPORTED AS ^ONCE^
     Route: 048
     Dates: start: 20170930, end: 20171101
  16. ZOLOFT [Concomitant]
     Active Substance: SERTRALINE HYDROCHLORIDE
     Indication: SUICIDAL IDEATION
     Route: 048
     Dates: start: 20171002, end: 20171004

REACTIONS (1)
  - Suicide attempt [Recovered/Resolved]

NARRATIVE: CASE EVENT DATE: 20171116
